FAERS Safety Report 5369488-6 (Version None)
Quarter: 2007Q2

REPORT INFORMATION
  Report Type: 
  Country: None (occurrence: None)
  Receive Date: 20070621
  Receipt Date: 20070614
  Transmission Date: 20071010
  Serious: Yes (Hospitalization)
  Sender: FDA-Public Use
  Company Number: S07-USA-02592-01

PATIENT
  Age: 84 Year
  Sex: Male

DRUGS (7)
  1. NAMENDA [Suspect]
     Indication: DEMENTIA ALZHEIMER'S TYPE
     Dates: start: 20061201
  2. SEROQUEL [Concomitant]
  3. SYNTHROID [Concomitant]
  4. PROSCAR [Concomitant]
  5. ACE INHIBITOR (NOS) [Concomitant]
  6. EYE DROPS (NOS) [Concomitant]
  7. ASPIRIN [Concomitant]

REACTIONS (6)
  - BLOOD POTASSIUM DECREASED [None]
  - CONDITION AGGRAVATED [None]
  - CONTUSION [None]
  - DEMENTIA [None]
  - FALL [None]
  - WRIST FRACTURE [None]
